FAERS Safety Report 25229399 (Version 1)
Quarter: 2025Q2

REPORT INFORMATION
  Report Type: Spontaneous
  Country: US (occurrence: None)
  Receive Date: 20250423
  Receipt Date: 20250423
  Transmission Date: 20250717
  Serious: Yes (Other)
  Sender: FDA-CTU
  Company Number: None

PATIENT
  Age: 79 Year
  Sex: Female

DRUGS (7)
  1. TICE BCG [Suspect]
     Active Substance: BACILLUS CALMETTE-GUERIN SUBSTRAIN TICE LIVE ANTIGEN
  2. GEMCITABINE [Suspect]
     Active Substance: GEMCITABINE
  3. KEYTRUDA [Suspect]
     Active Substance: PEMBROLIZUMAB
  4. SERTRALINE [Concomitant]
     Active Substance: SERTRALINE HYDROCHLORIDE
  5. LEVOTHYROXINE [Suspect]
     Active Substance: LEVOTHYROXINE
  6. ESTRADIOL [Suspect]
     Active Substance: ESTRADIOL
  7. VITAMIN B12 [Concomitant]
     Active Substance: CYANOCOBALAMIN

REACTIONS (14)
  - Bladder cancer recurrent [None]
  - Chest X-ray abnormal [None]
  - Oral pain [None]
  - Glossodynia [None]
  - Ageusia [None]
  - Dysgeusia [None]
  - Loose tooth [None]
  - Noninfective gingivitis [None]
  - Arthralgia [None]
  - Weight decreased [None]
  - Hypophagia [None]
  - Immune system disorder [None]
  - Ill-defined disorder [None]
  - Drug intolerance [None]

NARRATIVE: CASE EVENT DATE: 20231001
